FAERS Safety Report 10246855 (Version 1)
Quarter: 2014Q2

REPORT INFORMATION
  Report Type: Other
  Country: JP (occurrence: JP)
  Receive Date: 20140619
  Receipt Date: 20140619
  Transmission Date: 20141212
  Serious: Yes (Other)
  Sender: FDA-Public Use
  Company Number: JP-TAKEDA-2014TJP007519

PATIENT
  Age: 73 Year
  Sex: Male
  Weight: 59 kg

DRUGS (3)
  1. LANSAP 400 [Suspect]
     Indication: HELICOBACTER INFECTION
     Dosage: 0.5 DF, BID
     Route: 048
     Dates: start: 20140528, end: 20140603
  2. EXFORGE [Concomitant]
     Route: 048
  3. SALOBEL [Concomitant]
     Route: 048

REACTIONS (1)
  - Generalised erythema [Unknown]
